FAERS Safety Report 7315359-5 (Version None)
Quarter: 2011Q1

REPORT INFORMATION
  Report Type: 
  Country: None (occurrence: None)
  Receive Date: 20110225
  Receipt Date: 20110208
  Transmission Date: 20110831
  Serious: Yes (Other)
  Sender: FDA-Public Use
  Company Number: US-BAYER-201039990NA

PATIENT
  Sex: Female
  Weight: 92.971 kg

DRUGS (18)
  1. ACETAMINOPHEN [Concomitant]
  2. GLUCOPHAGE [Concomitant]
  3. FISH OIL [Concomitant]
  4. CEPHALEXIN [Concomitant]
  5. YASMIN [Suspect]
     Indication: ACNE
  6. AZITHROMYCIN [Concomitant]
  7. YAZ [Suspect]
     Indication: ORAL CONTRACEPTION
     Route: 048
     Dates: start: 20081201, end: 20090201
  8. YAZ [Suspect]
     Indication: ACNE
  9. UNCODEABLE ^UNCLASSIFIABLE^ [Concomitant]
  10. DIETARY SUPPLEMENTS [Concomitant]
  11. YAZ [Suspect]
     Indication: POLYCYSTIC OVARIES
  12. UNCODEABLE ^UNCLASSIFIABLE^ [Concomitant]
     Dosage: UNK
     Dates: start: 20040101
  13. METFORMIN HCL [Concomitant]
     Indication: DIABETES MELLITUS
     Dosage: UNK
     Dates: start: 20050101
  14. CIPROFLOXACIN [Concomitant]
  15. YASMIN [Suspect]
     Indication: ORAL CONTRACEPTION
     Dosage: UNK
     Route: 048
     Dates: start: 20040101, end: 20050101
  16. YASMIN [Suspect]
     Indication: POLYCYSTIC OVARIES
  17. UNCODEABLE ^UNCLASSIFIABLE^ [Concomitant]
  18. UNCODEABLE ^UNCLASSIFIABLE^ [Concomitant]

REACTIONS (4)
  - CHOLECYSTITIS [None]
  - ABDOMINAL TENDERNESS [None]
  - WEIGHT INCREASED [None]
  - ABDOMINAL PAIN [None]
